FAERS Safety Report 11109354 (Version 2)
Quarter: 2015Q2

REPORT INFORMATION
  Report Type: Spontaneous
  Country: PL (occurrence: PL)
  Receive Date: 20150513
  Receipt Date: 20150609
  Transmission Date: 20150821
  Serious: Yes (Hospitalization)
  Sender: FDA-Public Use
  Company Number: PL-ASTELLAS-2015US016088

PATIENT
  Age: 42 Year
  Sex: Male

DRUGS (2)
  1. MYCOPHENOLATE MOFETIL. [Concomitant]
     Active Substance: MYCOPHENOLATE MOFETIL
     Indication: RENAL TRANSPLANT
     Dosage: UNK UNK, UNKNOWN FREQ.
     Route: 065
  2. PROGRAF [Suspect]
     Active Substance: TACROLIMUS\TACROLIMUS ANHYDROUS
     Indication: RENAL TRANSPLANT
     Dosage: 0.3MG/KG OF BODY WEIGHT IN TWO DIVIDED DOSES A DAY
     Route: 042

REACTIONS (2)
  - Nephrotic syndrome [Recovered/Resolved]
  - Transplant dysfunction [Recovered/Resolved]
